FAERS Safety Report 8951374 (Version 2)
Quarter: 2013Q1

REPORT INFORMATION
  Report Type: Report from Study
  Country: CA (occurrence: CA)
  Receive Date: 20121207
  Receipt Date: 20130130
  Transmission Date: 20140127
  Serious: Yes (Hospitalization, Other)
  Sender: FDA-Public Use
  Company Number: CA-JNJFOC-20121114633

PATIENT
  Age: 17 Year
  Sex: Male
  Weight: 61 kg

DRUGS (3)
  1. REMICADE [Suspect]
     Indication: CROHN^S DISEASE
     Route: 042
     Dates: start: 20090302
  2. REMICADE [Suspect]
     Indication: CROHN^S DISEASE
     Route: 042
     Dates: start: 20121026
  3. OTHER THERAPEUTIC PRODUCT [Suspect]
     Indication: HYPERCHLORHYDRIA
     Route: 065
     Dates: start: 201211

REACTIONS (5)
  - Aneurysm [Not Recovered/Not Resolved]
  - Hypertension [Unknown]
  - Infusion related reaction [Unknown]
  - Palpitations [Unknown]
  - Hyperchlorhydria [Unknown]
